FAERS Safety Report 10977190 (Version 1)
Quarter: 2015Q1

REPORT INFORMATION
  Report Type: Spontaneous
  Country: US (occurrence: None)
  Receive Date: 20150331
  Receipt Date: 20150331
  Transmission Date: 20150721
  Serious: Yes (Death)
  Sender: FDA-Public Use
  Company Number: 2015SMT00018

PATIENT
  Age: 58 Year
  Sex: Female

DRUGS (2)
  1. OPTICELL AG + SILVER ANTIBACTERIAL GELLING FIBER WOULD DRESSING [Suspect]
     Active Substance: SILVER
     Indication: DECUBITUS ULCER
     Dosage: UNK, 1X/DAY, TOPICAL
     Route: 061
  2. COLLAGENASE SANTYL [Suspect]
     Active Substance: COLLAGENASE CLOSTRIDIUM HISTOLYTICUM
     Indication: DECUBITUS ULCER
     Dosage: UNK, 1X/DAY, TOPICAL
     Route: 061
     Dates: start: 20150116

REACTIONS (4)
  - Wrong technique in drug usage process [None]
  - Inhibitory drug interaction [None]
  - Wound complication [None]
  - Application site infection [None]

NARRATIVE: CASE EVENT DATE: 20150317
